FAERS Safety Report 14947908 (Version 1)
Quarter: 2018Q2

REPORT INFORMATION
  Report Type: Spontaneous
  Country: US (occurrence: US)
  Receive Date: 20180508
  Receipt Date: 20180508
  Transmission Date: 20180711
  Serious: Yes (Life-Threatening, Hospitalization, Disabling)
  Sender: FDA-Public Use
  Company Number: None

PATIENT
  Age: 27 Year
  Sex: Female
  Weight: 77.85 kg

DRUGS (2)
  1. ATIVAN [Suspect]
     Active Substance: LORAZEPAM
  2. KLONOPIN [Suspect]
     Active Substance: CLONAZEPAM

REACTIONS (5)
  - Suicidal ideation [None]
  - Somnambulism [None]
  - Asthenia [None]
  - Withdrawal syndrome [None]
  - Cerebral disorder [None]

NARRATIVE: CASE EVENT DATE: 20180421
